FAERS Safety Report 6192418-4 (Version None)
Quarter: 2009Q2

REPORT INFORMATION
  Report Type: 
  Country: None (occurrence: None)
  Receive Date: 20090513
  Receipt Date: 20090501
  Transmission Date: 20091009
  Serious: Yes (Death)
  Sender: FDA-Public Use
  Company Number: 200919989GPV

PATIENT
  Age: 17 Year

DRUGS (7)
  1. FLUDARABINE PHOSPHATE [Suspect]
     Indication: CHRONIC GRANULOMATOUS DISEASE
  2. FLUDARABINE PHOSPHATE [Suspect]
     Indication: STEM CELL TRANSPLANT
  3. CAMPATH [Suspect]
     Indication: CHRONIC GRANULOMATOUS DISEASE
  4. MELPHALAN (MELPHALAN) [Suspect]
     Indication: CHRONIC GRANULOMATOUS DISEASE
  5. CYCLOSPORINE [Suspect]
     Indication: PROPHYLAXIS AGAINST GRAFT VERSUS HOST DISEASE
  6. ITRACONAZOLE [Suspect]
     Indication: ANTIFUNGAL PROPHYLAXIS
  7. CO-TRIMOXAZOLE (CO-TRIMOXAZOLE [CO-TRIMOXAZOLE]) [Concomitant]

REACTIONS (7)
  - ASPERGILLOMA [None]
  - MULTI-ORGAN FAILURE [None]
  - PATHOGEN RESISTANCE [None]
  - PERICARDITIS FUNGAL [None]
  - PULMONARY CONGESTION [None]
  - PULMONARY OEDEMA [None]
  - SYSTEMIC MYCOSIS [None]
